FAERS Safety Report 12603283 (Version 1)
Quarter: 2016Q3

REPORT INFORMATION
  Report Type: Spontaneous
  Country: US (occurrence: US)
  Receive Date: 20160728
  Receipt Date: 20160728
  Transmission Date: 20161109
  Serious: No
  Sender: FDA-Public Use
  Company Number: US-BAYER-2016-146874

PATIENT
  Age: 84 Year
  Sex: Male
  Weight: 74.83 kg

DRUGS (5)
  1. CHLOR-TRIMETON [Concomitant]
     Active Substance: CHLORPHENIRAMINE MALEATE
     Dosage: UNK
  2. HYDROCHLOROTHIAZIDE. [Concomitant]
     Active Substance: HYDROCHLOROTHIAZIDE
     Dosage: 1 DF, QD
  3. CLARITIN [Suspect]
     Active Substance: LORATADINE
     Indication: ARTHROPOD BITE
     Dosage: 1 DF, QD
     Route: 048
     Dates: start: 20160726, end: 20160728
  4. CLARITIN [Suspect]
     Active Substance: LORATADINE
     Indication: SWELLING
  5. LISINOPRIL. [Concomitant]
     Active Substance: LISINOPRIL
     Dosage: 1 DF, BID

REACTIONS (1)
  - Product use issue [None]

NARRATIVE: CASE EVENT DATE: 20160726
